FAERS Safety Report 5091761-X (Version None)
Quarter: 2006Q3

REPORT INFORMATION
  Report Type: 
  Country: None (occurrence: None)
  Receive Date: 20060829
  Receipt Date: 20060510
  Transmission Date: 20061208
  Serious: No
  Sender: FDA-Public Use
  Company Number: US-BRISTOL-MYERS SQUIBB COMPANY-13373501

PATIENT
  Age: 59 Year
  Sex: Female
  Weight: 58 kg

DRUGS (7)
  1. ERBITUX [Suspect]
     Dates: start: 20060504, end: 20060504
  2. AVALIDE [Concomitant]
  3. VERAPAMIL [Concomitant]
  4. LABETALOL HCL [Concomitant]
  5. GLUCOPHAGE [Concomitant]
  6. WARFARIN SODIUM [Concomitant]
  7. PROMETHAZINE [Concomitant]

REACTIONS (3)
  - ALOPECIA [None]
  - HYPOTRICHOSIS [None]
  - RASH [None]
